FAERS Safety Report 10225072 (Version 1)
Quarter: 2014Q2

REPORT INFORMATION
  Report Type: Spontaneous
  Country: GB (occurrence: GB)
  Receive Date: 20140609
  Receipt Date: 20140609
  Transmission Date: 20141212
  Serious: Yes (Other)
  Sender: FDA-Public Use
  Company Number: PHFR2014GB004008

PATIENT
  Age: 45 Year
  Sex: Female
  Weight: 65.31 kg

DRUGS (9)
  1. TEGRETOL [Suspect]
     Indication: TRIGEMINAL NEURALGIA
     Dosage: 600 MG, UNK
     Route: 048
     Dates: start: 20140522
  2. TEGRETOL [Suspect]
     Dosage: UNK (DOSE INCREASED)
     Route: 048
  3. AMITRIPTYLINE [Concomitant]
     Dosage: UNK UKN, UNK
  4. VENLAFAXINE [Concomitant]
     Dosage: UNK UKN, UNK
  5. GILENYA [Concomitant]
     Dosage: UNK UKN, UNK
  6. LEVEMIR [Concomitant]
     Dosage: UNK UKN, UNK
  7. LYRICA [Concomitant]
     Dosage: UNK UKN, UNK
  8. METABET [Concomitant]
     Dosage: UNK UKN, UNK
  9. VICTOZA [Concomitant]
     Dosage: UNK UKN, UNK

REACTIONS (2)
  - Tic [Not Recovered/Not Resolved]
  - Dizziness [Not Recovered/Not Resolved]
